FAERS Safety Report 8415485-3 (Version None)
Quarter: 2012Q2

REPORT INFORMATION
  Report Type: 
  Country: None (occurrence: None)
  Receive Date: 20120606
  Receipt Date: 20120604
  Transmission Date: 20120825
  Serious: No
  Sender: FDA-Public Use
  Company Number: PHEH2012US011255

PATIENT
  Sex: Female

DRUGS (2)
  1. TASIGNA [Suspect]
  2. SPRYCEL [Suspect]

REACTIONS (4)
  - ARTHRALGIA [None]
  - FATIGUE [None]
  - BACK PAIN [None]
  - MUSCLE SPASMS [None]
